FAERS Safety Report 25894196 (Version 1)
Quarter: 2025Q4

REPORT INFORMATION
  Report Type: Spontaneous
  Country: JP (occurrence: JP)
  Receive Date: 20251008
  Receipt Date: 20251008
  Transmission Date: 20260118
  Serious: Yes (Hospitalization, Other)
  Sender: STRIDES
  Company Number: JP-STRIDES ARCOLAB LIMITED-2025SP012591

PATIENT
  Age: 82 Year
  Sex: Female

DRUGS (11)
  1. MEMANTINE [Interacting]
     Active Substance: MEMANTINE
     Indication: Dementia Alzheimer^s type
     Dosage: 5 MILLIGRAM
     Route: 065
  2. MEMANTINE [Interacting]
     Active Substance: MEMANTINE
     Dosage: TITRATED TO 20 MG AT 5 MG/WEEK
     Route: 065
  3. DONEPEZIL [Suspect]
     Active Substance: DONEPEZIL
     Indication: Dementia Alzheimer^s type
     Dosage: 5 MILLIGRAM
     Route: 065
  4. DONEPEZIL [Suspect]
     Active Substance: DONEPEZIL
     Dosage: 10 MILLIGRAM
     Route: 065
  5. QUETIAPINE [Interacting]
     Active Substance: QUETIAPINE
     Indication: Dementia Alzheimer^s type
     Dosage: 25 MILLIGRAM
     Route: 065
  6. QUETIAPINE [Interacting]
     Active Substance: QUETIAPINE
     Dosage: 50 MILLIGRAM
     Route: 065
  7. QUETIAPINE [Interacting]
     Active Substance: QUETIAPINE
     Dosage: 100 MILLIGRAM
     Route: 065
  8. QUETIAPINE [Interacting]
     Active Substance: QUETIAPINE
     Dosage: 200 MILLIGRAM
     Route: 065
  9. RISPERIDONE [Interacting]
     Active Substance: RISPERIDONE
     Indication: Dementia Alzheimer^s type
     Dosage: 2 MILLIGRAM
     Route: 065
  10. LEMBOREXANT [Concomitant]
     Active Substance: LEMBOREXANT
     Indication: Dementia Alzheimer^s type
     Dosage: 5 MILLIGRAM
     Route: 065
  11. LEMBOREXANT [Concomitant]
     Active Substance: LEMBOREXANT
     Dosage: DOSE INCREASED
     Route: 065

REACTIONS (7)
  - Renal impairment [Recovered/Resolved]
  - Hyperuricaemia [Recovered/Resolved]
  - Drug interaction [Unknown]
  - Cholinergic syndrome [Unknown]
  - Condition aggravated [Unknown]
  - Middle insomnia [Unknown]
  - Drug ineffective [Unknown]
